FAERS Safety Report 5035804-8 (Version None)
Quarter: 2006Q2

REPORT INFORMATION
  Report Type: 
  Country: None (occurrence: None)
  Receive Date: 20060622
  Receipt Date: 20060608
  Transmission Date: 20061013
  Serious: Yes (Other)
  Sender: FDA-Public Use
  Company Number: 2006S1005351

PATIENT
  Age: 42 Year
  Sex: Female
  Weight: 122.4712 kg

DRUGS (3)
  1. PIROXICAM [Suspect]
     Indication: OSTEOARTHRITIS
     Dosage: 20 MG;X1;ORAL
     Route: 048
     Dates: start: 20060525, end: 20060525
  2. LEVOTHYROXINE SODIUM [Concomitant]
  3. CARBAMAZEPINE [Concomitant]

REACTIONS (5)
  - HEADACHE [None]
  - HYPERSENSITIVITY [None]
  - PRURITUS GENERALISED [None]
  - SWELLING FACE [None]
  - URTICARIA [None]
